FAERS Safety Report 9369972 (Version 1)
Quarter: 2013Q2

REPORT INFORMATION
  Report Type: Spontaneous
  Country: US (occurrence: US)
  Receive Date: 20130626
  Receipt Date: 20130626
  Transmission Date: 20140414
  Serious: Yes (Life-Threatening, Hospitalization, Other)
  Sender: FDA-Public Use
  Company Number: US-ROXANE LABORATORIES, INC.-2013-RO-01008RO

PATIENT
  Age: 88 Year
  Sex: Male

DRUGS (1)
  1. AZATHIOPRINE [Suspect]
     Indication: INTERSTITIAL LUNG DISEASE

REACTIONS (5)
  - Acute respiratory distress syndrome [Unknown]
  - Shock [Unknown]
  - Multi-organ failure [Unknown]
  - Drug reaction with eosinophilia and systemic symptoms [Unknown]
  - Acidosis [Unknown]
